FAERS Safety Report 5673826-4 (Version None)
Quarter: 2008Q1

REPORT INFORMATION
  Report Type: 
  Country: None (occurrence: None)
  Receive Date: 20080319
  Receipt Date: 20080229
  Transmission Date: 20080703
  Serious: Yes (Hospitalization)
  Sender: FDA-Public Use
  Company Number: IT-PFIZER INC-2008024166

PATIENT
  Sex: Female

DRUGS (3)
  1. LYRICA [Suspect]
     Indication: DIABETIC NEUROPATHY
     Route: 048
     Dates: start: 20050901, end: 20080101
  2. INSULIN [Concomitant]
  3. OXYCODONE HYDROCHLORIDE [Concomitant]

REACTIONS (1)
  - BRONCHOSPASM [None]
